FAERS Safety Report 13549805 (Version 2)
Quarter: 2017Q3

REPORT INFORMATION
  Report Type: Spontaneous
  Country: PH (occurrence: PH)
  Receive Date: 20170516
  Receipt Date: 20170804
  Transmission Date: 20171127
  Serious: Yes (Other)
  Sender: FDA-Public Use
  Company Number: PH-NOVOPROD-544186

PATIENT
  Age: 72 Year
  Sex: Female

DRUGS (2)
  1. FUROSEMIDE. [Concomitant]
     Active Substance: FUROSEMIDE
     Indication: RENAL DISORDER
     Dosage: UNK
     Route: 065
  2. VICTOZA [Suspect]
     Active Substance: LIRAGLUTIDE
     Indication: DIABETES MELLITUS
     Dosage: UNK
     Route: 065
     Dates: start: 20170331, end: 20170503

REACTIONS (2)
  - Hepatomegaly [Unknown]
  - Ascites [Unknown]

NARRATIVE: CASE EVENT DATE: 20170503
